FAERS Safety Report 20135068 (Version 1)
Quarter: 2021Q4

REPORT INFORMATION
  Report Type: Spontaneous
  Country: US (occurrence: None)
  Receive Date: 20211201
  Receipt Date: 20211201
  Transmission Date: 20220303
  Serious: Yes (Hospitalization)
  Sender: FDA-Public Use
  Company Number: None

PATIENT
  Age: 62 Year
  Sex: Male
  Weight: 97.71 kg

DRUGS (1)
  1. CISPLATIN [Suspect]
     Active Substance: CISPLATIN
     Dates: end: 20211122

REACTIONS (5)
  - Lymphocyte count decreased [None]
  - Drug hypersensitivity [None]
  - Pyrexia [None]
  - Lethargy [None]
  - Hypotension [None]

NARRATIVE: CASE EVENT DATE: 20210101
